FAERS Safety Report 6555821-6 (Version None)
Quarter: 2010Q1

REPORT INFORMATION
  Report Type: 
  Country: None (occurrence: None)
  Receive Date: 20100128
  Receipt Date: 20100119
  Transmission Date: 20100710
  Serious: Yes (Other)
  Sender: FDA-Public Use
  Company Number: US-BAYER-200943727NA

PATIENT
  Age: 39 Year
  Sex: Female
  Weight: 55 kg

DRUGS (1)
  1. MIRENA [Suspect]
     Indication: CONTRACEPTION
     Dosage: CONTINUOUS
     Route: 015
     Dates: start: 20091119, end: 20091217

REACTIONS (5)
  - ABDOMINAL PAIN LOWER [None]
  - ACNE [None]
  - BACK PAIN [None]
  - BREAST TENDERNESS [None]
  - DEVICE DISLOCATION [None]
